FAERS Safety Report 8109928-2 (Version None)
Quarter: 2012Q1

REPORT INFORMATION
  Report Type: 
  Country: None (occurrence: None)
  Receive Date: 20120202
  Receipt Date: 20120123
  Transmission Date: 20120608
  Serious: No
  Sender: FDA-Public Use
  Company Number: US-AMGEN-USASP2012004705

PATIENT
  Age: 64 Year
  Sex: Female

DRUGS (1)
  1. ENBREL [Suspect]
     Indication: RHEUMATOID ARTHRITIS
     Dosage: 50 MG, QWK
     Dates: start: 20110422, end: 20120114

REACTIONS (7)
  - NASAL CONGESTION [None]
  - WHEEZING [None]
  - DECREASED APPETITE [None]
  - THROAT IRRITATION [None]
  - FATIGUE [None]
  - SPUTUM DISCOLOURED [None]
  - COUGH [None]
